FAERS Safety Report 15745134 (Version 7)
Quarter: 2019Q3

REPORT INFORMATION
  Report Type: Report from Study
  Country: JP (occurrence: JP)
  Receive Date: 20181220
  Receipt Date: 20190708
  Transmission Date: 20191004
  Serious: No
  Sender: FDA-Public Use
  Company Number: JP-SA-2018SA343269

PATIENT
  Age: 80 Year
  Sex: Male
  Weight: 49 kg

DRUGS (16)
  1. IRINOTECAN [Suspect]
     Active Substance: IRINOTECAN
     Dosage: 140 MG/M2
     Route: 065
     Dates: start: 20180911, end: 20180911
  2. AFLIBERCEPT [Suspect]
     Active Substance: AFLIBERCEPT
     Dosage: 4 MG/KG
     Route: 041
     Dates: start: 20180807, end: 20180807
  3. AFLIBERCEPT [Suspect]
     Active Substance: AFLIBERCEPT
     Dosage: 4 MG/KG
     Route: 041
     Dates: start: 20180828, end: 20180828
  4. IRINOTECAN [Suspect]
     Active Substance: IRINOTECAN
     Indication: COLON CANCER
     Dosage: 140 MG/M2
     Route: 065
     Dates: start: 20180710, end: 20180710
  5. IRINOTECAN [Suspect]
     Active Substance: IRINOTECAN
     Dosage: 140 MG/M2
     Route: 065
     Dates: start: 20180828, end: 20180828
  6. IRINOTECAN [Suspect]
     Active Substance: IRINOTECAN
     Dosage: 140 MG/M2
     Route: 065
     Dates: start: 20180807, end: 20180807
  7. FLUOROURACIL. [Suspect]
     Active Substance: FLUOROURACIL
     Indication: COLON CANCER
     Dosage: 3500 MG/M2
     Route: 041
     Dates: start: 20180710, end: 20180710
  8. AFLIBERCEPT [Suspect]
     Active Substance: AFLIBERCEPT
     Dosage: 4 MG/KG
     Route: 041
     Dates: start: 20180911, end: 20180911
  9. CALCIUM FOLINATE [Suspect]
     Active Substance: LEUCOVORIN CALCIUM
     Dosage: 310 MG/M2
     Route: 065
     Dates: start: 20180807, end: 20180807
  10. FLUOROURACIL. [Suspect]
     Active Substance: FLUOROURACIL
     Dosage: 3500 MG/M2
     Route: 041
     Dates: start: 20180828, end: 20180828
  11. AFLIBERCEPT [Suspect]
     Active Substance: AFLIBERCEPT
     Indication: COLON CANCER
     Dosage: 4 MG/KG
     Route: 041
     Dates: start: 20180710, end: 20180710
  12. CALCIUM FOLINATE [Suspect]
     Active Substance: LEUCOVORIN CALCIUM
     Dosage: 310 MG/M2
     Route: 065
     Dates: start: 20180828, end: 20180828
  13. FLUOROURACIL. [Suspect]
     Active Substance: FLUOROURACIL
     Dosage: 3500 MG/M2
     Route: 041
     Dates: start: 20180807, end: 20180807
  14. FLUOROURACIL. [Suspect]
     Active Substance: FLUOROURACIL
     Dosage: 3500 MG/M2
     Route: 041
     Dates: start: 20180911, end: 20180911
  15. CALCIUM FOLINATE [Suspect]
     Active Substance: LEUCOVORIN CALCIUM
     Indication: COLON CANCER
     Dosage: 310 MG/M2
     Route: 065
     Dates: start: 20180710, end: 20180710
  16. CALCIUM FOLINATE [Suspect]
     Active Substance: LEUCOVORIN CALCIUM
     Dosage: 310 MG/M2
     Route: 065
     Dates: start: 20180911, end: 20180911

REACTIONS (1)
  - Decreased appetite [Recovering/Resolving]

NARRATIVE: CASE EVENT DATE: 20180724
